FAERS Safety Report 23723245 (Version 1)
Quarter: 2024Q2

REPORT INFORMATION
  Report Type: Spontaneous
  Country: CA (occurrence: CA)
  Receive Date: 20240409
  Receipt Date: 20240409
  Transmission Date: 20240716
  Serious: Yes (Hospitalization, Other)
  Sender: FDA-Public Use
  Company Number: CA-FreseniusKabi-FK202405910

PATIENT
  Age: 32 Year
  Sex: Male

DRUGS (7)
  1. FENTANYL [Suspect]
     Active Substance: FENTANYL\FENTANYL CITRATE
     Indication: Product used for unknown indication
     Dosage: 2 POINTS (200 MCG) DAILY
     Route: 042
  2. ARIPIPRAZOLE [Concomitant]
     Active Substance: ARIPIPRAZOLE
     Indication: Product used for unknown indication
     Route: 030
  3. buprenorphine-naloxone (BUP-SL) [Concomitant]
     Indication: Product used for unknown indication
     Route: 060
  4. METHAMPHETAMINE [Concomitant]
     Active Substance: METHAMPHETAMINE
     Indication: Product used for unknown indication
     Route: 042
  5. COCAINE [Concomitant]
     Active Substance: COCAINE
     Indication: Product used for unknown indication
  6. HYDROMORPHONE [Concomitant]
     Active Substance: HYDROMORPHONE
     Indication: Product used for unknown indication
     Route: 048
  7. buprenorphine (BUP-XR) [Concomitant]
     Indication: Product used for unknown indication
     Route: 058

REACTIONS (6)
  - Headache [Unknown]
  - Skin laceration [Unknown]
  - Fall [Unknown]
  - Skull fracture [Unknown]
  - Haemorrhage intracranial [Unknown]
  - Cerebral venous sinus thrombosis [Unknown]
